FAERS Safety Report 14821439 (Version 1)
Quarter: 2018Q2

REPORT INFORMATION
  Report Type: Spontaneous
  Country: US (occurrence: US)
  Receive Date: 20180427
  Receipt Date: 20180427
  Transmission Date: 20180711
  Serious: Yes (Hospitalization, Other)
  Sender: FDA-Public Use
  Company Number: US-LANNETT COMPANY, INC.-US-2018LAN000654

PATIENT

DRUGS (3)
  1. BENZTROPINE                        /00012901/ [Concomitant]
     Active Substance: BENZTROPINE
     Indication: PRODUCT USED FOR UNKNOWN INDICATION
     Dosage: UNK
  2. FLUPHENAZINE HYDROCHLORIDE (10MG) [Suspect]
     Active Substance: FLUPHENAZINE HYDROCHLORIDE
     Indication: INSOMNIA
     Dosage: 2.5 MG, QD
     Route: 048
     Dates: end: 20180402
  3. FLUPHENAZINE HYDROCHLORIDE (10MG) [Suspect]
     Active Substance: FLUPHENAZINE HYDROCHLORIDE
     Indication: NIGHTMARE
     Dosage: 5 MG, QD
     Route: 048

REACTIONS (10)
  - Aortic valve stenosis [Recovered/Resolved]
  - Trismus [Not Recovered/Not Resolved]
  - Cardiac disorder [Recovered/Resolved]
  - Tongue movement disturbance [Unknown]
  - Product use in unapproved indication [Recovered/Resolved]
  - Tooth loss [Not Recovered/Not Resolved]
  - Cerebral cyst [Not Recovered/Not Resolved]
  - Loose tooth [Not Recovered/Not Resolved]
  - Dry mouth [Not Recovered/Not Resolved]
  - Swollen tongue [Not Recovered/Not Resolved]

NARRATIVE: CASE EVENT DATE: 201301
